FAERS Safety Report 9359855 (Version 1)
Quarter: 2013Q2

REPORT INFORMATION
  Report Type: Spontaneous
  Country: US (occurrence: US)
  Receive Date: 20130621
  Receipt Date: 20130621
  Transmission Date: 20140414
  Serious: No
  Sender: FDA-Public Use
  Company Number: US-US-EMD SERONO, INC.-231350J10USA

PATIENT
  Age: 24 Year
  Sex: Female
  Weight: 48 kg

DRUGS (2)
  1. REBIF [Suspect]
     Indication: MULTIPLE SCLEROSIS
     Route: 065
     Dates: start: 2004, end: 2004
  2. REBIF [Suspect]
     Route: 058
     Dates: start: 20090427

REACTIONS (3)
  - Migraine [Unknown]
  - Depressed mood [Unknown]
  - Hypoaesthesia [Unknown]
